FAERS Safety Report 24357467 (Version 1)
Quarter: 2024Q3

REPORT INFORMATION
  Report Type: Spontaneous
  Country: CA (occurrence: CA)
  Receive Date: 20240924
  Receipt Date: 20240924
  Transmission Date: 20241016
  Serious: Yes (Hospitalization)
  Sender: REGENERON
  Company Number: CA-ULTRAGENYX PHARMACEUTICAL INC.-CA-UGX-24-01754

PATIENT
  Sex: Male

DRUGS (1)
  1. EVKEEZA [Suspect]
     Active Substance: EVINACUMAB-DGNB
     Indication: Type IIa hyperlipidaemia
     Dosage: 15 MILLIGRAM/KILOGRAM, EVERY FOUR WEEKS
     Route: 042
     Dates: start: 20230405

REACTIONS (2)
  - Dyspnoea [Unknown]
  - Hypervolaemia [Unknown]

NARRATIVE: CASE EVENT DATE: 20240823
